FAERS Safety Report 17458684 (Version 1)
Quarter: 2020Q1

REPORT INFORMATION
  Report Type: Spontaneous
  Country: US (occurrence: US)
  Receive Date: 20200225
  Receipt Date: 20200225
  Transmission Date: 20200409
  Serious: No
  Sender: FDA-Public Use
  Company Number: US-IGSA-SR10007975

PATIENT
  Age: 65 Year
  Sex: Female
  Weight: 77 kg

DRUGS (24)
  1. METHOTREXATE (METHOTREXATE SODIUM) [Concomitant]
     Active Substance: METHOTREXATE SODIUM
  2. PROGRAF [Concomitant]
     Active Substance: TACROLIMUS
  3. BUMEX [Concomitant]
     Active Substance: BUMETANIDE
  4. COLACE [Concomitant]
     Active Substance: DOCUSATE SODIUM
  5. ACTONEL [Concomitant]
     Active Substance: RISEDRONATE SODIUM
  6. PREDNISONE                         /00044702/ [Concomitant]
     Active Substance: PREDNISONE
  7. NOVOLOG [Concomitant]
     Active Substance: INSULIN ASPART
  8. CELLCEPT [Concomitant]
     Active Substance: MYCOPHENOLATE MOFETIL\MYCOPHENOLATE MOFETIL HYDROCHLORIDE
  9. FOLIC ACID. [Concomitant]
     Active Substance: FOLIC ACID
  10. LISINOPRIL                         /00894002/ [Concomitant]
     Active Substance: LISINOPRIL
  11. METOPROLOL TARTRATE. [Concomitant]
     Active Substance: METOPROLOL TARTRATE
  12. MVI                                /01825701/ [Concomitant]
     Active Substance: VITAMINS
  13. GAS-X [Concomitant]
     Active Substance: DIMETHICONE
  14. XANAX [Concomitant]
     Active Substance: ALPRAZOLAM
  15. PROLASTIN-C LIQUID [Suspect]
     Active Substance: .ALPHA.1-PROTEINASE INHIBITOR HUMAN
     Indication: ALPHA-1 ANTI-TRYPSIN DEFICIENCY
     Dosage: 4620 MG, Q.WK.
     Route: 042
     Dates: start: 20190301, end: 20190301
  16. ZITHROMAX [Concomitant]
     Active Substance: AZITHROMYCIN DIHYDRATE
  17. DAPSONE. [Concomitant]
     Active Substance: DAPSONE
  18. NEURONTIN [Concomitant]
     Active Substance: GABAPENTIN
  19. OXYCODONE                          /00045603/ [Concomitant]
     Active Substance: OXYCODONE
  20. PROLASTIN-C LIQUID [Suspect]
     Active Substance: .ALPHA.1-PROTEINASE INHIBITOR HUMAN
     Dosage: 4620 MG, Q.WK.
     Route: 042
     Dates: start: 20190122
  21. MAGNESIUM                          /00082501/ [Concomitant]
     Active Substance: ALUMINUM HYDROXIDE\MAGNESIUM HYDROXIDE
  22. PRILOSEC [Concomitant]
     Active Substance: OMEPRAZOLE MAGNESIUM
  23. CALCIUM +D3 [Concomitant]
     Active Substance: CALCIUM\CHOLECALCIFEROL
  24. MILK OF MAGNESIA [Concomitant]
     Active Substance: MAGNESIUM HYDROXIDE

REACTIONS (3)
  - Nausea [Not Recovered/Not Resolved]
  - Vomiting [Recovered/Resolved]
  - Diarrhoea [Not Recovered/Not Resolved]

NARRATIVE: CASE EVENT DATE: 20190122
